FAERS Safety Report 10883022 (Version 1)
Quarter: 2015Q1

REPORT INFORMATION
  Report Type: Spontaneous
  Country: GB (occurrence: GB)
  Receive Date: 20150303
  Receipt Date: 20150303
  Transmission Date: 20150721
  Serious: Yes (Death, Other)
  Sender: FDA-Public Use
  Company Number: PHHY2015GB024491

PATIENT
  Age: 35 Year
  Sex: Male

DRUGS (1)
  1. ACETYLSALICYLIC ACID [Suspect]
     Active Substance: ASPIRIN
     Indication: THROMBOSIS
     Dosage: 500 MG, UNK
     Route: 042

REACTIONS (7)
  - Infection [Unknown]
  - Cerebral haemorrhage [Unknown]
  - Sepsis [Fatal]
  - Pupil fixed [Unknown]
  - Brain oedema [Unknown]
  - Subdural haematoma [Unknown]
  - Cerebral infarction [Unknown]
